FAERS Safety Report 8188459-8 (Version None)
Quarter: 2012Q1

REPORT INFORMATION
  Report Type: 
  Country: None (occurrence: None)
  Receive Date: 20120306
  Receipt Date: 20120229
  Transmission Date: 20120608
  Serious: Yes (Other)
  Sender: FDA-Public Use
  Company Number: PHEH2009US10063

PATIENT
  Sex: Male
  Weight: 116.55 kg

DRUGS (7)
  1. METOPROLOL SUCCINATE [Concomitant]
     Dosage: 50 MG, BID
  2. FLUTAMIDE [Concomitant]
  3. LUPRON [Concomitant]
  4. PERCOCET [Concomitant]
  5. CASODEX [Concomitant]
  6. ENALAPRIL MALEATE [Concomitant]
     Dosage: 5 MG, UNK
  7. ZOMETA [Suspect]
     Indication: NEOPLASM MALIGNANT

REACTIONS (43)
  - NEOPLASM MALIGNANT [None]
  - PATHOLOGICAL FRACTURE [None]
  - DIVERTICULUM [None]
  - PARAESTHESIA [None]
  - ABDOMINAL PAIN [None]
  - DYSPNOEA [None]
  - COUGH [None]
  - DEFORMITY [None]
  - SLEEP APNOEA SYNDROME [None]
  - FUNGAL INFECTION [None]
  - DYSARTHRIA [None]
  - MENTAL STATUS CHANGES [None]
  - HEPATIC STEATOSIS [None]
  - METASTASES TO BONE [None]
  - MASTICATION DISORDER [None]
  - DEPRESSION [None]
  - CEREBROVASCULAR ACCIDENT [None]
  - CARDIOMEGALY [None]
  - OSTEONECROSIS OF JAW [None]
  - SPONDYLOLYSIS [None]
  - HAEMATURIA [None]
  - ANXIETY [None]
  - TRICUSPID VALVE INCOMPETENCE [None]
  - BACTERIAL INFECTION [None]
  - PNEUMONIA [None]
  - EMOTIONAL DISTRESS [None]
  - AORTIC VALVE INCOMPETENCE [None]
  - INFECTION [None]
  - ANAEMIA [None]
  - DIARRHOEA [None]
  - TRANSIENT ISCHAEMIC ATTACK [None]
  - ANHEDONIA [None]
  - OSTEOMYELITIS [None]
  - ERECTILE DYSFUNCTION [None]
  - COLITIS [None]
  - OSTEOPENIA [None]
  - WEIGHT DECREASED [None]
  - CARDIAC FAILURE CONGESTIVE [None]
  - PAIN [None]
  - LIFE EXPECTANCY SHORTENED [None]
  - ADENOCARCINOMA [None]
  - FACE OEDEMA [None]
  - PURULENCE [None]
